FAERS Safety Report 6804422-0 (Version None)
Quarter: 2010Q2

REPORT INFORMATION
  Report Type: 
  Country: None (occurrence: None)
  Receive Date: 20100628
  Receipt Date: 20070330
  Transmission Date: 20101027
  Serious: Yes (Other)
  Sender: FDA-Public Use
  Company Number: US-PFIZER INC-2007007666

PATIENT
  Sex: Female
  Weight: 32.2 kg

DRUGS (4)
  1. GENOTROPIN [Suspect]
     Indication: HYPOPITUITARISM
     Route: 058
     Dates: start: 20061101, end: 20070122
  2. PREDNISONE [Concomitant]
     Dosage: TWO TIMES DAILY
     Dates: start: 20060101
  3. LEVOXYL [Concomitant]
     Dates: start: 20061101
  4. IBUPROFEN [Concomitant]
     Dosage: AS REQUIRED

REACTIONS (3)
  - BRAIN OEDEMA [None]
  - HEADACHE [None]
  - VISION BLURRED [None]
